FAERS Safety Report 6520551-3 (Version None)
Quarter: 2009Q4

REPORT INFORMATION
  Report Type: 
  Country: None (occurrence: None)
  Receive Date: 20091229
  Receipt Date: 20091224
  Transmission Date: 20100525
  Serious: Yes (Death, Hospitalization, Other)
  Sender: FDA-Public Use
  Company Number: JP-BAYER-200912336BYL

PATIENT
  Age: 62 Year
  Sex: Male

DRUGS (7)
  1. NEXAVAR [Suspect]
     Indication: RENAL CELL CARCINOMA
     Dosage: TOTAL DAILY DOSE: 400 MG  UNIT DOSE: 200 MG
     Route: 048
     Dates: start: 20090430, end: 20090609
  2. NEXAVAR [Suspect]
     Dosage: UNIT DOSE: 200 MG
     Route: 048
     Dates: start: 20090717, end: 20090730
  3. NEXAVAR [Suspect]
     Dosage: UNIT DOSE: 200 MG
     Route: 048
     Dates: start: 20090731, end: 20090909
  4. NEXAVAR [Suspect]
     Dosage: UNIT DOSE: 200 MG
     Route: 048
     Dates: start: 20091024, end: 20091202
  5. NEXAVAR [Suspect]
     Route: 048
     Dates: end: 20091023
  6. ALLOPURINOL [Suspect]
     Indication: BLOOD URIC ACID INCREASED
     Route: 048
     Dates: start: 20090813, end: 20090909
  7. ZOMETA [Concomitant]
     Route: 042
     Dates: start: 20091023

REACTIONS (18)
  - ALANINE AMINOTRANSFERASE INCREASED [None]
  - ALOPECIA [None]
  - ASPARTATE AMINOTRANSFERASE INCREASED [None]
  - BLOOD ALKALINE PHOSPHATASE INCREASED [None]
  - BLOOD LACTATE DEHYDROGENASE INCREASED [None]
  - BLOOD UREA INCREASED [None]
  - BLOOD URIC ACID INCREASED [None]
  - C-REACTIVE PROTEIN INCREASED [None]
  - DYSGEUSIA [None]
  - DYSPHONIA [None]
  - FACE OEDEMA [None]
  - GAMMA-GLUTAMYLTRANSFERASE INCREASED [None]
  - NAIL PIGMENTATION [None]
  - NEUTROPHIL COUNT DECREASED [None]
  - PROTEIN TOTAL INCREASED [None]
  - RASH [None]
  - RENAL CELL CARCINOMA [None]
  - WHITE BLOOD CELL COUNT DECREASED [None]
